FAERS Safety Report 7672407-0 (Version None)
Quarter: 2011Q3

REPORT INFORMATION
  Report Type: 
  Country: None (occurrence: None)
  Receive Date: 20110809
  Receipt Date: 20110729
  Transmission Date: 20111222
  Serious: Yes (Hospitalization)
  Sender: FDA-Public Use
  Company Number: JP-MERCK-1108USA00245

PATIENT
  Age: 74 Year
  Sex: Female

DRUGS (4)
  1. THEO-DUR [Suspect]
     Route: 048
     Dates: end: 20110726
  2. PHENOBARBITAL TAB [Suspect]
     Route: 048
     Dates: end: 20110726
  3. ZOCOR [Suspect]
     Route: 048
     Dates: end: 20110726
  4. PEPCID [Suspect]
     Route: 048
     Dates: end: 20110726

REACTIONS (1)
  - RHABDOMYOLYSIS [None]
